FAERS Safety Report 9910593 (Version 1)
Quarter: 2014Q1

REPORT INFORMATION
  Report Type: Spontaneous
  Country: US (occurrence: US)
  Receive Date: 20140219
  Receipt Date: 20140219
  Transmission Date: 20141002
  Serious: No
  Sender: FDA-Public Use
  Company Number: US-BAYER-2014-024234

PATIENT
  Age: 49 Year
  Sex: Female
  Weight: 113.38 kg

DRUGS (1)
  1. MIRENA [Suspect]
     Indication: CONTRACEPTION
     Dosage: 20 MCG/24HR, CONT
     Route: 015
     Dates: start: 201310, end: 201310

REACTIONS (5)
  - Procedural pain [None]
  - Abdominal pain [None]
  - Complication of device insertion [None]
  - Device difficult to use [None]
  - Device misuse [None]
